FAERS Safety Report 7141018-8 (Version None)
Quarter: 2010Q4

REPORT INFORMATION
  Report Type: 
  Country: None (occurrence: None)
  Receive Date: 20101207
  Receipt Date: 20101126
  Transmission Date: 20110411
  Serious: Yes (Hospitalization)
  Sender: FDA-Public Use
  Company Number: IT-TEVA-258175ISR

PATIENT
  Sex: Female

DRUGS (2)
  1. FLUOROURACIL [Suspect]
  2. EPIRUBICIN [Suspect]

REACTIONS (1)
  - DYSPNOEA [None]
